FAERS Safety Report 6727235-7 (Version None)
Quarter: 2010Q2

REPORT INFORMATION
  Report Type: 
  Country: None (occurrence: None)
  Receive Date: 20100517
  Receipt Date: 20100506
  Transmission Date: 20101027
  Serious: Yes (Other)
  Sender: FDA-Public Use
  Company Number: US-ELI_LILLY_AND_COMPANY-US201005001798

PATIENT
  Sex: Female

DRUGS (5)
  1. HUMALOG [Suspect]
     Indication: TYPE 1 DIABETES MELLITUS
  2. HUMALOG [Suspect]
     Indication: DIABETES MELLITUS
     Dosage: 3 U, EACH MORNING
     Dates: start: 20100101
  3. HUMALOG [Suspect]
     Dosage: 4 U, OTHER
     Dates: start: 20100101
  4. HUMALOG [Suspect]
     Dosage: 5 U, EACH EVENING
     Dates: start: 20100101
  5. LEVEMIR [Concomitant]
     Dosage: 18 U, 2/D

REACTIONS (6)
  - BLOOD GLUCOSE INCREASED [None]
  - CARDIAC OPERATION [None]
  - CARDIAC PACEMAKER INSERTION [None]
  - CATARACT [None]
  - INCORRECT DOSE ADMINISTERED [None]
  - WRONG DRUG ADMINISTERED [None]
